FAERS Safety Report 5278076-1 (Version None)
Quarter: 2007Q1

REPORT INFORMATION
  Report Type: 
  Country: None (occurrence: None)
  Receive Date: 20070321
  Receipt Date: 20070312
  Transmission Date: 20070707
  Serious: Yes (Death)
  Sender: FDA-Public Use
  Company Number: 238308

PATIENT
  Age: 70 Year
  Sex: Female

DRUGS (4)
  1. XOLAIR [Suspect]
     Indication: ASTHMA
     Dosage: 4 AMP, Q4W
     Dates: start: 20061201
  2. FORMOTEROL (FORMOTEROL FUMARATE) [Concomitant]
  3. THEOPHYLLINE [Concomitant]
  4. MONTELUKAST (MONTELUKAST SODIUM) [Concomitant]

REACTIONS (1)
  - ACUTE RESPIRATORY FAILURE [None]
